FAERS Safety Report 9198181 (Version 4)
Quarter: 2013Q3

REPORT INFORMATION
  Report Type: Spontaneous
  Country: US (occurrence: US)
  Receive Date: 20130329
  Receipt Date: 20130708
  Transmission Date: 20140515
  Serious: No
  Sender: FDA-Public Use
  Company Number: US-BIOGENIDEC-2013BI027932

PATIENT
  Age: 30 Year
  Sex: Female

DRUGS (1)
  1. AVONEX [Suspect]
     Indication: MULTIPLE SCLEROSIS
     Route: 030
     Dates: start: 20130306

REACTIONS (27)
  - Respiratory tract congestion [Not Recovered/Not Resolved]
  - Contusion [Recovered/Resolved with Sequelae]
  - Injection site bruising [Not Recovered/Not Resolved]
  - General symptom [Unknown]
  - Tremor [Unknown]
  - Cough [Unknown]
  - Burning sensation [Recovered/Resolved]
  - Somnolence [Recovered/Resolved]
  - Memory impairment [Recovered/Resolved]
  - Euphoric mood [Recovered/Resolved]
  - Miosis [Recovered/Resolved]
  - Infection [Not Recovered/Not Resolved]
  - Vomiting [Recovered/Resolved]
  - Chills [Unknown]
  - Malaise [Unknown]
  - Rhinorrhoea [Unknown]
  - Pain [Unknown]
  - Injection site pain [Unknown]
  - Paraesthesia [Recovered/Resolved]
  - Anxiety [Not Recovered/Not Resolved]
  - Influenza like illness [Recovered/Resolved with Sequelae]
  - Pain in extremity [Recovered/Resolved]
  - Hyperhidrosis [Recovered/Resolved]
  - Middle insomnia [Recovered/Resolved]
  - Feeling abnormal [Not Recovered/Not Resolved]
  - White blood cell count decreased [Recovered/Resolved]
  - Platelet count decreased [Recovered/Resolved]
